FAERS Safety Report 13938449 (Version 2)
Quarter: 2017Q4

REPORT INFORMATION
  Report Type: Spontaneous
  Country: GB (occurrence: GB)
  Receive Date: 20170905
  Receipt Date: 20171208
  Transmission Date: 20180320
  Serious: Yes (Hospitalization, Other)
  Sender: FDA-Public Use
  Company Number: GB-MYLANLABS-2017M1054465

PATIENT
  Sex: Male

DRUGS (3)
  1. PREGABALIN. [Suspect]
     Active Substance: PREGABALIN
     Indication: PRODUCT USED FOR UNKNOWN INDICATION
     Dosage: UNK
     Route: 048
  2. TRAMADOL. [Suspect]
     Active Substance: TRAMADOL
     Indication: PAIN
     Dosage: UNK
     Route: 048
  3. MIRTAZAPINE. [Concomitant]
     Active Substance: MIRTAZAPINE
     Indication: DEPRESSION
     Dosage: UNK
     Route: 048

REACTIONS (6)
  - Circulatory collapse [Recovered/Resolved]
  - Seizure [Not Recovered/Not Resolved]
  - Drug abuse [Unknown]
  - Heart rate irregular [Not Recovered/Not Resolved]
  - Fatigue [Unknown]
  - Intentional overdose [Unknown]

NARRATIVE: CASE EVENT DATE: 2015
